FAERS Safety Report 7262402-8 (Version None)
Quarter: 2011Q1

REPORT INFORMATION
  Report Type: 
  Country: None (occurrence: None)
  Receive Date: 20110130
  Receipt Date: 20101116
  Transmission Date: 20110831
  Serious: No
  Sender: FDA-Public Use
  Company Number: US-ABBOTT-10P-163-0686214-00

PATIENT
  Sex: Male
  Weight: 72.64 kg

DRUGS (4)
  1. METHOTREXATE [Concomitant]
     Indication: PSORIASIS
     Dates: start: 20101001
  2. FOLATE [Concomitant]
     Indication: PSORIASIS
     Dates: start: 20101001
  3. HUMIRA [Suspect]
     Indication: PSORIASIS
     Dates: start: 20100924, end: 20101029
  4. UNKNOWN TOPICAL STEROID OINTMENT [Concomitant]
     Indication: PSORIASIS
     Route: 061
     Dates: start: 20100907

REACTIONS (2)
  - OEDEMA [None]
  - DERMATITIS BULLOUS [None]
